FAERS Safety Report 11208291 (Version 1)
Quarter: 2015Q2

REPORT INFORMATION
  Report Type: Spontaneous
  Country: US (occurrence: US)
  Receive Date: 20150622
  Receipt Date: 20150622
  Transmission Date: 20150821
  Serious: No
  Sender: FDA-Public Use
  Company Number: US-TAKEDA-2015TUS004283

PATIENT
  Sex: Female
  Weight: 93.33 kg

DRUGS (7)
  1. CONTRAVE [Suspect]
     Active Substance: BUPROPION HYDROCHLORIDE\NALTREXONE HYDROCHLORIDE
     Indication: OVERWEIGHT
     Dosage: 1 TABLET, QD
     Route: 048
     Dates: start: 20150126, end: 20150202
  2. PSEUDOEPHEDRINE -TRIPROLIDINE [Concomitant]
     Indication: HYPERSENSITIVITY
     Dosage: UNK
     Route: 048
  3. PSEUDOEPHEDRINE -TRIPROLIDINE [Concomitant]
     Indication: SINUS DISORDER
  4. LOESTRIN NOS [Concomitant]
     Active Substance: ETHINYL ESTRADIOL\NORETHINDRONE ACETATE
     Indication: CONTRACEPTION
     Dosage: UNK
     Route: 048
  5. CONTRAVE [Suspect]
     Active Substance: BUPROPION HYDROCHLORIDE\NALTREXONE HYDROCHLORIDE
     Dosage: 2 TABS Q A.M. THEN 1 TAB Q P.M.
     Route: 048
     Dates: start: 20150210, end: 20150216
  6. CONTRAVE [Suspect]
     Active Substance: BUPROPION HYDROCHLORIDE\NALTREXONE HYDROCHLORIDE
     Dosage: 1 TABLET, BID
     Route: 048
     Dates: start: 20150203, end: 20150209
  7. CONTRAVE [Suspect]
     Active Substance: BUPROPION HYDROCHLORIDE\NALTREXONE HYDROCHLORIDE
     Dosage: 2 TABS Q A.M. THEN 2 TAB Q P.M
     Route: 048
     Dates: start: 20150217, end: 201503

REACTIONS (1)
  - Drug ineffective [Unknown]
